FAERS Safety Report 19917865 (Version 1)
Quarter: 2021Q4

REPORT INFORMATION
  Report Type: Spontaneous
  Country: US (occurrence: US)
  Receive Date: 20211005
  Receipt Date: 20211005
  Transmission Date: 20220303
  Serious: Yes (Hospitalization)
  Sender: FDA-Public Use
  Company Number: None

PATIENT
  Age: 80 Year
  Sex: Male
  Weight: 83.34 kg

DRUGS (1)
  1. REGEN-COV [Suspect]
     Active Substance: CASIRIVIMAB\IMDEVIMAB
     Indication: SARS-CoV-2 test positive
     Dosage: ?          OTHER FREQUENCY:ONE TIME;
     Route: 042
     Dates: start: 20210929, end: 20210929

REACTIONS (4)
  - Dyspnoea [None]
  - Erythema [None]
  - Heart rate increased [None]
  - Retching [None]

NARRATIVE: CASE EVENT DATE: 20210929
